FAERS Safety Report 11401129 (Version 1)
Quarter: 2015Q3

REPORT INFORMATION
  Report Type: Spontaneous
  Country: CH (occurrence: CH)
  Receive Date: 20150820
  Receipt Date: 20150820
  Transmission Date: 20151125
  Serious: Yes (Hospitalization)
  Sender: FDA-Public Use
  Company Number: PHHY2015CH097364

PATIENT
  Age: 68 Year
  Sex: Male
  Weight: 101 kg

DRUGS (10)
  1. PANTOZOL [Suspect]
     Active Substance: PANTOPRAZOLE SODIUM
     Indication: PRODUCT USED FOR UNKNOWN INDICATION
     Route: 048
     Dates: end: 20150506
  2. METOPROLOL [Suspect]
     Active Substance: METOPROLOL
     Indication: HYPERTENSION
     Route: 048
  3. TOREM [Suspect]
     Active Substance: TORSEMIDE
     Indication: PRODUCT USED FOR UNKNOWN INDICATION
     Route: 048
     Dates: end: 20150521
  4. ALLOPUR [Suspect]
     Active Substance: ALLOPURINOL
     Indication: PRODUCT USED FOR UNKNOWN INDICATION
     Route: 048
     Dates: end: 20150506
  5. CHELIDONINE [Suspect]
     Active Substance: CHELIDONINE
     Indication: DYSPEPSIA
     Route: 048
     Dates: start: 201504, end: 201505
  6. CYMBALTA [Suspect]
     Active Substance: DULOXETINE HYDROCHLORIDE
     Indication: PRODUCT USED FOR UNKNOWN INDICATION
     Route: 048
     Dates: end: 20150506
  7. COSOPT S [Concomitant]
     Indication: GLAUCOMA
     Route: 047
  8. TIMOGEL [Concomitant]
     Active Substance: TIMOLOL MALEATE
     Indication: GLAUCOMA
     Route: 047
  9. NOZINAN                                 /NET/ [Suspect]
     Active Substance: LEVOMEPROMAZINE
     Indication: PRODUCT USED FOR UNKNOWN INDICATION
     Route: 048
     Dates: start: 20150506
  10. SINTROM [Suspect]
     Active Substance: ACENOCOUMAROL
     Indication: ATRIAL FIBRILLATION
     Route: 048

REACTIONS (8)
  - Jaundice cholestatic [Recovering/Resolving]
  - Cardiac disorder [None]
  - Drug-induced liver injury [Recovering/Resolving]
  - Cardiac pacemaker insertion [None]
  - Liver function test abnormal [Recovering/Resolving]
  - Urinary tract infection [None]
  - Hepatitis cholestatic [None]
  - Hepatitis toxic [None]

NARRATIVE: CASE EVENT DATE: 20150502
